FAERS Safety Report 8071338-4 (Version None)
Quarter: 2012Q1

REPORT INFORMATION
  Report Type: 
  Country: None (occurrence: None)
  Receive Date: 20120125
  Receipt Date: 20120119
  Transmission Date: 20120608
  Serious: Yes (Hospitalization, Other)
  Sender: FDA-Public Use
  Company Number: FR-PFIZER INC-K201001285

PATIENT
  Age: 74 Year
  Sex: Female

DRUGS (9)
  1. URBANYL [Suspect]
     Indication: PARTIAL SEIZURES
     Dosage: 10 MG, 2X/DAY
     Route: 048
     Dates: start: 20100821
  2. AMLODIPINE BESYLATE [Suspect]
     Dosage: 5 MG, 1X/DAY
     Route: 048
  3. METFORMIN HCL [Concomitant]
     Dosage: 700 MG, 2X/DAY
  4. ASPIRIN [Concomitant]
     Dosage: 75 MG, 1X/DAY
  5. LORAZEPAM [Suspect]
     Dosage: 1 MG, 1X/DAY
     Route: 048
  6. ESIDRIX [Suspect]
     Dosage: 25 MG, 1X/DAY
     Route: 048
  7. ATORVASTATIN [Concomitant]
     Dosage: 20 MG, 1X/DAY
  8. RAMIPRIL [Suspect]
     Dosage: 5 MG, 1X/DAY
     Route: 048
  9. TEGRETOL [Suspect]
     Indication: PARTIAL SEIZURES
     Dosage: 200 MG, 3X/DAY
     Route: 048

REACTIONS (14)
  - FALL [None]
  - FATIGUE [None]
  - VENTRICULAR EXTRASYSTOLES [None]
  - CAROTID ARTERY STENOSIS [None]
  - ORTHOSTATIC HYPOTENSION [None]
  - LIP INJURY [None]
  - LIMB INJURY [None]
  - COGNITIVE DISORDER [None]
  - PYREXIA [None]
  - MEMORY IMPAIRMENT [None]
  - ASTHENIA [None]
  - DRUG INTERACTION [None]
  - LIP HAEMATOMA [None]
  - MICROCYTIC ANAEMIA [None]
